FAERS Safety Report 10502329 (Version 2)
Quarter: 2014Q4

REPORT INFORMATION
  Report Type: Spontaneous
  Country: IT (occurrence: IT)
  Receive Date: 20141007
  Receipt Date: 20141031
  Transmission Date: 20150528
  Serious: Yes (Hospitalization)
  Sender: FDA-Public Use
  Company Number: IT-TEVA-513367ISR

PATIENT
  Age: 53 Year
  Sex: Female

DRUGS (4)
  1. FLUOROURACIL. [Concomitant]
     Active Substance: FLUOROURACIL
     Indication: PRODUCT USED FOR UNKNOWN INDICATION
     Dosage: 400 MG/M2 (ON DAY 1,2,15,16)
     Route: 040
  2. FLUOROURACIL. [Concomitant]
     Active Substance: FLUOROURACIL
     Dosage: CONTINUOUS INFUSION 44HOURS Q28, ON DAY 1, 15
     Route: 042
  3. CALCIUM LEVOFOLINATE [Suspect]
     Active Substance: LEVOLEUCOVORIN CALCIUM
     Indication: ADENOCARCINOMA OF COLON
     Dosage: 100 MG/M2 CYCLICAL (ON DAY 1,2,15,16)
     Route: 042
     Dates: start: 20140324, end: 20140922
  4. OXALIPLATINO ACTAVIS - ACTAVIS ITALY S.P.A. [Suspect]
     Active Substance: OXALIPLATIN
     Indication: ADENOCARCINOMA OF COLON
     Dosage: 75 MG/M2 CYCLICAL (ON DAY 1,15)
     Route: 042
     Dates: start: 20140324, end: 20140922

REACTIONS (3)
  - Abdominal distension [Recovered/Resolved]
  - Vomiting [Recovered/Resolved]
  - Erythema [None]

NARRATIVE: CASE EVENT DATE: 20140922
